FAERS Safety Report 15400335 (Version 1)
Quarter: 2018Q3

REPORT INFORMATION
  Report Type: Spontaneous
  Country: JP (occurrence: JP)
  Receive Date: 20180919
  Receipt Date: 20180919
  Transmission Date: 20181010
  Serious: Yes (Other)
  Sender: FDA-Public Use
  Company Number: JP-TEVA-2018-JP-953712

PATIENT
  Age: 79 Year
  Sex: Female

DRUGS (4)
  1. AZILECT [Suspect]
     Active Substance: RASAGILINE MESYLATE
     Indication: PARKINSON^S DISEASE
     Route: 048
     Dates: start: 20180822
  2. AZILECT [Suspect]
     Active Substance: RASAGILINE MESYLATE
     Dosage: .5 MILLIGRAM DAILY;
     Route: 048
  3. COMTAN [Concomitant]
     Active Substance: ENTACAPONE
     Route: 065
  4. LEVODOPA [Concomitant]
     Active Substance: LEVODOPA
     Route: 065

REACTIONS (3)
  - Wrong technique in product usage process [Unknown]
  - Sudden onset of sleep [Recovered/Resolved]
  - Drug prescribing error [Unknown]
